FAERS Safety Report 9199786 (Version 1)
Quarter: 2013Q1

REPORT INFORMATION
  Report Type: Report from Study
  Country: CA (occurrence: CA)
  Receive Date: 20130329
  Receipt Date: 20130329
  Transmission Date: 20140127
  Serious: Yes (Death)
  Sender: FDA-Public Use
  Company Number: CA-ROCHE-1208264

PATIENT
  Sex: Male
  Weight: 68 kg

DRUGS (13)
  1. RITUXAN [Suspect]
     Indication: SJOGREN^S SYNDROME
     Route: 042
     Dates: start: 20110321, end: 20110404
  2. NAPROXEN [Concomitant]
  3. DIPHENHYDRAMINE HCL [Concomitant]
     Indication: PREMEDICATION
     Route: 048
     Dates: start: 20110321, end: 20110404
  4. ACETAMINOPHEN [Concomitant]
     Indication: PREMEDICATION
     Route: 048
     Dates: start: 20110321, end: 20110404
  5. METHYLPREDNISOLONE [Concomitant]
     Indication: PREMEDICATION
     Route: 042
     Dates: start: 20110321, end: 20110404
  6. PREDNISONE [Concomitant]
  7. ATIVAN [Concomitant]
  8. LYRICA [Concomitant]
  9. VITAMIN B12 [Concomitant]
  10. PLAQUENIL [Concomitant]
  11. ACTONEL [Concomitant]
  12. TYLENOL [Concomitant]
  13. SENOKOT [Concomitant]

REACTIONS (1)
  - Death [Fatal]
